FAERS Safety Report 7077748-6 (Version None)
Quarter: 2010Q4

REPORT INFORMATION
  Report Type: 
  Country: None (occurrence: None)
  Receive Date: 20101101
  Receipt Date: 20090804
  Transmission Date: 20110411
  Serious: Yes (Hospitalization, Other)
  Sender: FDA-Public Use
  Company Number: PHEH2009US07742

PATIENT
  Sex: Female

DRUGS (1)
  1. EXJADE [Suspect]
     Dosage: 1250 MG DAILY
     Route: 048
     Dates: start: 20090619, end: 20091119

REACTIONS (3)
  - DIARRHOEA [None]
  - HIP FRACTURE [None]
  - RENAL FAILURE [None]
